FAERS Safety Report 9981610 (Version 1)
Quarter: 2014Q1

REPORT INFORMATION
  Report Type: Report from Study
  Country: US (occurrence: US)
  Receive Date: 20140307
  Receipt Date: 20140307
  Transmission Date: 20141002
  Serious: No
  Sender: FDA-Public Use
  Company Number: US-ABBVIE-13P-163-1179930-00

PATIENT
  Sex: Female
  Weight: 87.17 kg

DRUGS (4)
  1. HUMIRA [Suspect]
     Indication: RHEUMATOID ARTHRITIS
     Dates: start: 200207
  2. METHADONE [Concomitant]
     Indication: SPINAL COLUMN STENOSIS
  3. PROZAC [Concomitant]
     Indication: PAIN
  4. LIMBITROL [Concomitant]
     Indication: INSOMNIA

REACTIONS (3)
  - Local swelling [Recovered/Resolved]
  - Rheumatoid arthritis [Not Recovered/Not Resolved]
  - Pain in extremity [Recovered/Resolved]
